FAERS Safety Report 6257202-1 (Version None)
Quarter: 2009Q3

REPORT INFORMATION
  Report Type: 
  Country: None (occurrence: None)
  Receive Date: 20090706
  Receipt Date: 20090623
  Transmission Date: 20100115
  Serious: Yes (Hospitalization)
  Sender: FDA-Public Use
  Company Number: US-ELI_LILLY_AND_COMPANY-US200906006332

PATIENT
  Sex: Female

DRUGS (3)
  1. ZYPREXA [Suspect]
     Dosage: 2.5 MG, UNK
     Dates: start: 20090602, end: 20090609
  2. ZYPREXA [Suspect]
     Dosage: 7.5 MG, UNK
     Dates: start: 20090601, end: 20090601
  3. HALDOL [Concomitant]
     Dates: start: 20090601

REACTIONS (3)
  - AGGRESSION [None]
  - HALLUCINATION [None]
  - MENTAL STATUS CHANGES [None]
